FAERS Safety Report 6323664-4 (Version None)
Quarter: 2009Q3

REPORT INFORMATION
  Report Type: 
  Country: None (occurrence: None)
  Receive Date: 20090824
  Receipt Date: 20090402
  Transmission Date: 20100115
  Serious: No
  Sender: FDA-Public Use
  Company Number: US-ABBOTT-09P-163-0565148-00

PATIENT
  Sex: Male
  Weight: 88.984 kg

DRUGS (11)
  1. NIASPAN [Suspect]
     Indication: HIGH DENSITY LIPOPROTEIN DECREASED
     Route: 048
     Dates: start: 20081201, end: 20081201
  2. NIASPAN [Suspect]
     Indication: LOW DENSITY LIPOPROTEIN INCREASED
  3. CAPTOPRIL [Concomitant]
     Indication: HYPERTENSION
  4. ATENOLOL [Concomitant]
     Indication: HYPERTENSION
  5. GLYBURIDE [Concomitant]
     Indication: DIABETES MELLITUS
  6. JENUVIA [Concomitant]
     Indication: DIABETES MELLITUS
  7. SIMVASTATIN [Concomitant]
     Indication: BLOOD CHOLESTEROL INCREASED
  8. FENOFIBRATE [Concomitant]
     Indication: BLOOD CHOLESTEROL INCREASED
  9. METFORMIN HCL [Concomitant]
     Indication: DIABETES MELLITUS
  10. ASPIRIN [Concomitant]
     Indication: PROPHYLAXIS
  11. ASCORBIC ACID [Concomitant]
     Indication: NASOPHARYNGITIS

REACTIONS (1)
  - BLOOD GLUCOSE INCREASED [None]
